FAERS Safety Report 7435648-3 (Version None)
Quarter: 2011Q2

REPORT INFORMATION
  Report Type: 
  Country: None (occurrence: None)
  Receive Date: 20110425
  Receipt Date: 20110412
  Transmission Date: 20111010
  Serious: Yes (Hospitalization)
  Sender: FDA-Public Use
  Company Number: US-BAYER-2011-032094

PATIENT
  Sex: Male

DRUGS (1)
  1. SORAFENIB (RAF KINASE INHIBITOR) [Suspect]
     Indication: HEPATIC NEOPLASM MALIGNANT
     Dosage: 400 MG, BID
     Route: 048
     Dates: start: 20110404, end: 20110407

REACTIONS (9)
  - TREMOR [None]
  - PYREXIA [None]
  - SOMNOLENCE [None]
  - PANCREATITIS ACUTE [None]
  - RENAL FAILURE [None]
  - BACK PAIN [None]
  - WHITE BLOOD CELL COUNT INCREASED [None]
  - ABDOMINAL PAIN UPPER [None]
  - FATIGUE [None]
